FAERS Safety Report 7438976-0 (Version None)
Quarter: 2011Q2

REPORT INFORMATION
  Report Type: 
  Country: None (occurrence: None)
  Receive Date: 20110427
  Receipt Date: 20110422
  Transmission Date: 20111010
  Serious: Yes (Other)
  Sender: FDA-Public Use
  Company Number: CA-BRISTOL-MYERS SQUIBB COMPANY-15692700

PATIENT
  Age: 63 Year
  Sex: Male

DRUGS (5)
  1. ZOFRAN [Concomitant]
     Route: 048
     Dates: start: 20101217, end: 20110403
  2. VINORELBINE [Suspect]
     Indication: NON-SMALL CELL LUNG CANCER
     Route: 042
     Dates: start: 20101217, end: 20110408
  3. CISPLATIN [Suspect]
     Indication: NON-SMALL CELL LUNG CANCER
     Route: 042
     Dates: start: 20101217, end: 20110401
  4. CETUXIMAB [Suspect]
     Indication: NON-SMALL CELL LUNG CANCER
     Route: 042
     Dates: start: 20101217
  5. DEXAMETHASONE [Concomitant]
     Route: 048
     Dates: start: 20101217, end: 20110403

REACTIONS (1)
  - PULMONARY EMBOLISM [None]
